FAERS Safety Report 5164509-8 (Version None)
Quarter: 2006Q4

REPORT INFORMATION
  Report Type: 
  Country: None (occurrence: None)
  Receive Date: 20061127
  Receipt Date: 20061110
  Transmission Date: 20070319
  Serious: Yes (Hospitalization)
  Sender: FDA-Public Use
  Company Number: 2006-299

PATIENT
  Age: 70 Year
  Sex: Female

DRUGS (3)
  1. WARFARIN SODIUM [Suspect]
     Dosage: 4MG 3 DAYS A WEEK
  2. CAMPHOR [Concomitant]
  3. AMIODARONE HCL [Concomitant]

REACTIONS (9)
  - ECCHYMOSIS [None]
  - INSOMNIA [None]
  - INTERNATIONAL NORMALISED RATIO INCREASED [None]
  - MUSCLE HAEMORRHAGE [None]
  - OEDEMA PERIPHERAL [None]
  - PHARYNGITIS [None]
  - PULMONARY CONGESTION [None]
  - RETROPERITONEAL HAEMATOMA [None]
  - UPPER RESPIRATORY TRACT INFECTION [None]
